FAERS Safety Report 6847358-1 (Version None)
Quarter: 2010Q3

REPORT INFORMATION
  Report Type: 
  Country: None (occurrence: None)
  Receive Date: 20100716
  Receipt Date: 20100706
  Transmission Date: 20110219
  Serious: Yes (Other)
  Sender: FDA-Public Use
  Company Number: CA-JNJFOC-20100702062

PATIENT
  Sex: Female
  Weight: 87 kg

DRUGS (7)
  1. REMICADE [Suspect]
     Indication: PSORIATIC ARTHROPATHY
     Route: 042
  2. REMICADE [Suspect]
     Route: 042
  3. ZANTAC [Concomitant]
  4. ADVAIR DISKUS 100/50 [Concomitant]
     Dosage: PRN
  5. VENTOLIN [Concomitant]
     Dosage: PRN
  6. SYMBICORT [Concomitant]
  7. ACIDOPHILUS [Concomitant]

REACTIONS (2)
  - ASTHMA [None]
  - INFUSION RELATED REACTION [None]
